FAERS Safety Report 7053834-1 (Version None)
Quarter: 2010Q4

REPORT INFORMATION
  Report Type: 
  Country: None (occurrence: None)
  Receive Date: 20101020
  Receipt Date: 20101006
  Transmission Date: 20110411
  Serious: Yes (Other)
  Sender: FDA-Public Use
  Company Number: PHHY2010US69228

PATIENT
  Sex: Female
  Weight: 2 kg

DRUGS (4)
  1. MYFORTIC [Suspect]
     Dosage: UNK
     Route: 064
  2. TACROLIMUS [Concomitant]
     Route: 064
  3. PREDNISONE [Concomitant]
     Route: 064
  4. PRENATAL VITAMINS [Concomitant]
     Route: 064

REACTIONS (7)
  - CYTOGENETIC ABNORMALITY [None]
  - DRUG EXPOSURE DURING PREGNANCY [None]
  - GASTROOESOPHAGEAL REFLUX DISEASE [None]
  - LARYNGOMALACIA [None]
  - MATERNAL DRUGS AFFECTING FOETUS [None]
  - MILK ALLERGY [None]
  - SURGERY [None]
